FAERS Safety Report 10108948 (Version 5)
Quarter: 2014Q2

REPORT INFORMATION
  Report Type: Report from Study
  Country: US (occurrence: US)
  Receive Date: 20140425
  Receipt Date: 20140603
  Transmission Date: 20141212
  Serious: Yes (Hospitalization)
  Sender: FDA-Public Use
  Company Number: US-JNJFOC-20140416148

PATIENT
  Age: 17 Year
  Sex: Female
  Weight: 57.9 kg

DRUGS (3)
  1. REMICADE [Suspect]
     Indication: CROHN^S DISEASE
     Route: 042
     Dates: start: 20100626, end: 20120322
  2. 5-ASA [Concomitant]
     Route: 048
  3. METHOTREXATE [Concomitant]
     Route: 065

REACTIONS (2)
  - Crohn^s disease [Recovered/Resolved]
  - Arthralgia [Recovered/Resolved]
